FAERS Safety Report 12175022 (Version 2)
Quarter: 2016Q2

REPORT INFORMATION
  Report Type: Spontaneous
  Country: US (occurrence: US)
  Receive Date: 20160314
  Receipt Date: 20160505
  Transmission Date: 20160815
  Serious: No
  Sender: FDA-Public Use
  Company Number: US-009507513-1603USA002678

PATIENT
  Age: 58 Year
  Sex: Female

DRUGS (2)
  1. BELSOMRA [Suspect]
     Active Substance: SUVOREXANT
     Dosage: 20 MG, QD
     Route: 048
  2. BELSOMRA [Suspect]
     Active Substance: SUVOREXANT
     Indication: SLEEP DISORDER THERAPY
     Dosage: 15 MG, UNK
     Route: 048
     Dates: start: 201512

REACTIONS (2)
  - Drug effect delayed [Unknown]
  - Fatigue [Unknown]

NARRATIVE: CASE EVENT DATE: 201512
